FAERS Safety Report 9456511 (Version 1)
Quarter: 2013Q3

REPORT INFORMATION
  Report Type: Spontaneous
  Country: US (occurrence: US)
  Receive Date: 20130813
  Receipt Date: 20130813
  Transmission Date: 20140515
  Serious: No
  Sender: FDA-Public Use
  Company Number: US-009507513-1308USA005030

PATIENT
  Age: 65 Year
  Sex: Male

DRUGS (2)
  1. NASONEX [Suspect]
     Indication: RHINITIS
     Dosage: 1 SPRAY IN EACH NOSTRIL ONCE DAILY
     Route: 055
     Dates: start: 201301
  2. INSULIN [Concomitant]

REACTIONS (1)
  - Blood glucose increased [Not Recovered/Not Resolved]
